FAERS Safety Report 10015061 (Version 3)
Quarter: 2014Q2

REPORT INFORMATION
  Report Type: Report from Study
  Country: US (occurrence: US)
  Receive Date: 20140317
  Receipt Date: 20140401
  Transmission Date: 20141212
  Serious: Yes (Hospitalization)
  Sender: FDA-Public Use
  Company Number: US-ACTELION-A-NJ2013-92136

PATIENT
  Age: 48 Year
  Sex: Male

DRUGS (4)
  1. VENTAVIS [Suspect]
     Indication: PULMONARY ARTERIAL HYPERTENSION
     Dosage: 5 UNK, UNK
     Route: 055
     Dates: start: 20120103
  2. ADCIRCA [Concomitant]
  3. COUMADIN [Concomitant]
  4. RIOCIGUAT [Concomitant]

REACTIONS (2)
  - Epistaxis [Unknown]
  - Pulmonary haemorrhage [Recovered/Resolved]
